FAERS Safety Report 6293017-6 (Version None)
Quarter: 2009Q3

REPORT INFORMATION
  Report Type: 
  Country: None (occurrence: None)
  Receive Date: 20090729
  Receipt Date: 20090713
  Transmission Date: 20100115
  Serious: Yes (Hospitalization, Other)
  Sender: FDA-Public Use
  Company Number: TCI2009A01540

PATIENT
  Age: 67 Year
  Sex: Female

DRUGS (3)
  1. LANSOPRAZOLE [Suspect]
     Indication: GASTRIC ULCER
     Dosage: 15 MG (15 MG, 1 IN 1 D) , PER ORAL
     Route: 048
     Dates: start: 20060101, end: 20081007
  2. LOXOPROFEN SODIUM [Concomitant]
  3. DICLOFENAC SODIUM [Concomitant]

REACTIONS (4)
  - COLITIS COLLAGENOUS [None]
  - DIARRHOEA [None]
  - LARGE INTESTINAL ULCER [None]
  - SCAR [None]
